FAERS Safety Report 7094219-1 (Version None)
Quarter: 2010Q4

REPORT INFORMATION
  Report Type: 
  Country: None (occurrence: None)
  Receive Date: 20101110
  Receipt Date: 20101101
  Transmission Date: 20110411
  Serious: Yes (Hospitalization)
  Sender: FDA-Public Use
  Company Number: US-GENZYME-MOZO-1000372

PATIENT
  Age: 62 Year
  Sex: Female
  Weight: 81.4 kg

DRUGS (15)
  1. MOZOBIL [Suspect]
     Indication: HAEMATOPOIETIC STEM CELL MOBILISATION
     Dosage: 25.9 MG, QD
     Route: 042
     Dates: start: 20100614, end: 20100615
  2. MOZOBIL [Suspect]
     Indication: MULTIPLE MYELOMA
  3. NEUPOGEN [Concomitant]
     Indication: HAEMATOPOIETIC STEM CELL MOBILISATION
     Dosage: UNK
     Dates: end: 20100615
  4. CYTOXAN [Suspect]
     Indication: HAEMATOPOIETIC STEM CELL MOBILISATION
     Dosage: UNK
     Dates: end: 20100615
  5. VALPROIC ACID [Concomitant]
     Dosage: 1 OTHER, UNK
     Route: 048
  6. ATIVAN [Concomitant]
     Dosage: 1 MG, UNK
     Route: 065
  7. BARACLUDE [Concomitant]
     Dosage: 0.5 MG, UNK
     Route: 065
  8. CYMBALTA [Concomitant]
     Dosage: 60 MG, UNK
     Route: 065
  9. FLUCONAZOLE [Concomitant]
     Dosage: 400 MG, UNK
     Route: 065
  10. PREVACID [Concomitant]
     Dosage: 30 MG, UNK
     Route: 065
  11. SYNTHROID [Concomitant]
     Dosage: 50 OTHER, UNK
     Route: 065
  12. TRAZODONE [Concomitant]
     Dosage: 50 MG, UNK
     Route: 065
  13. VANCOMYCIN [Concomitant]
     Dosage: 125 MG, UNK
     Route: 065
  14. ZOFRAN [Concomitant]
     Dosage: 8 MG, UNK
     Route: 065
  15. ZYPREXA [Concomitant]
     Dosage: 2.5 MG, UNK
     Route: 065

REACTIONS (2)
  - CHILLS [None]
  - PYREXIA [None]
